FAERS Safety Report 6742191-3 (Version None)
Quarter: 2010Q2

REPORT INFORMATION
  Report Type: 
  Country: None (occurrence: None)
  Receive Date: 20100526
  Receipt Date: 20100524
  Transmission Date: 20101027
  Serious: Yes (Hospitalization, Other)
  Sender: FDA-Public Use
  Company Number: IE-ROCHE-684662

PATIENT
  Sex: Female
  Weight: 74.1 kg

DRUGS (7)
  1. BEVACIZUMAB [Suspect]
     Indication: BREAST CANCER
     Dosage: ACTUAL DOSE: 1225 MG, LAST DOSE PRIOR TO SAE: 02 FEBRUARY 2010, FORM: INFUSION
     Route: 042
     Dates: start: 20090324, end: 20100215
  2. DOCETAXEL [Suspect]
     Indication: BREAST CANCER
     Dosage: 4 CYCLES; EACH CYCLE OF 21 DAYS; FORM: INFUSION
     Route: 042
     Dates: start: 20090324, end: 20090526
  3. CYCLOPHOSPHAMIDE [Suspect]
     Indication: BREAST CANCER
     Dosage: 4 CYCLES, EACH CYCLE OF 21 DAYS; FORM: INFUSION
     Route: 042
     Dates: start: 20090324, end: 20090526
  4. LETROZOLE [Concomitant]
     Dates: start: 20090616
  5. CALCICHEW D3 FORTE [Concomitant]
     Dates: start: 20090616
  6. BUSCOPAN [Concomitant]
     Dates: start: 20100202
  7. VALOID [Concomitant]
     Dates: start: 20100202

REACTIONS (2)
  - C-REACTIVE PROTEIN INCREASED [None]
  - GASTROINTESTINAL PERFORATION [None]
